FAERS Safety Report 11430426 (Version 1)
Quarter: 2015Q3

REPORT INFORMATION
  Report Type: Spontaneous
  Country: US (occurrence: US)
  Receive Date: 20150828
  Receipt Date: 20150828
  Transmission Date: 20151125
  Serious: No
  Sender: FDA-Public Use
  Company Number: US-ROCHE-CID000000002222173

PATIENT
  Sex: Male

DRUGS (2)
  1. COPEGUS [Suspect]
     Active Substance: RIBAVIRIN
     Indication: CHRONIC HEPATITIS C
     Dosage: DIVIDED DOSE; FOR 24 WEEKS THERAPY
     Route: 048
     Dates: start: 20121105, end: 20130415
  2. PEGASYS [Suspect]
     Active Substance: PEGINTERFERON ALFA-2A
     Indication: CHRONIC HEPATITIS C
     Dosage: FOR 24 WEEKS THERAPY
     Route: 058
     Dates: start: 20121105, end: 20130415

REACTIONS (11)
  - Feeling cold [Unknown]
  - Fatigue [Unknown]
  - Hot flush [Unknown]
  - Nausea [Unknown]
  - Headache [Unknown]
  - Hyperhidrosis [Unknown]
  - Skin ulcer [Unknown]
  - Vomiting [Unknown]
  - Malaise [Unknown]
  - Chills [Unknown]
  - Tremor [Unknown]
